FAERS Safety Report 13724477 (Version 1)
Quarter: 2017Q3

REPORT INFORMATION
  Report Type: Spontaneous
  Country: US (occurrence: US)
  Receive Date: 20170706
  Receipt Date: 20170706
  Transmission Date: 20171127
  Serious: Yes (Other)
  Sender: FDA-Public Use
  Company Number: US-PFIZER INC-2017285976

PATIENT
  Sex: Female

DRUGS (1)
  1. XELJANZ XR [Suspect]
     Active Substance: TOFACITINIB CITRATE
     Dosage: 11 MG, UNK

REACTIONS (11)
  - Sleep disorder due to general medical condition, insomnia type [Unknown]
  - Arthralgia [Unknown]
  - Bursa disorder [Unknown]
  - Musculoskeletal pain [Recovering/Resolving]
  - Pain in extremity [Recovering/Resolving]
  - Joint range of motion decreased [Unknown]
  - Hip fracture [Unknown]
  - Rotator cuff syndrome [Unknown]
  - Muscle tightness [Unknown]
  - Lasegue^s test negative [Unknown]
  - Gait disturbance [Unknown]
